FAERS Safety Report 8306207-5 (Version None)
Quarter: 2012Q2

REPORT INFORMATION
  Report Type: 
  Country: None (occurrence: None)
  Receive Date: 20120423
  Receipt Date: 20120417
  Transmission Date: 20120825
  Serious: Yes (Hospitalization)
  Sender: FDA-Public Use
  Company Number: US-FRI-1000029880

PATIENT
  Age: 85 Year
  Sex: Female

DRUGS (6)
  1. METOPROLOL TARTRATE [Suspect]
     Dates: end: 20120308
  2. NITROGLYCERIN [Concomitant]
     Indication: ANGINA PECTORIS
  3. BYSTOLIC [Suspect]
     Route: 048
     Dates: start: 20120309, end: 20120314
  4. ASPIRIN [Concomitant]
  5. ISOSORBIDE DINITRATE [Concomitant]
     Indication: ANGINA PECTORIS
  6. SIMVASTATIN [Concomitant]
     Indication: BLOOD CHOLESTEROL INCREASED

REACTIONS (6)
  - NAUSEA [None]
  - MALAISE [None]
  - VOMITING [None]
  - BACK PAIN [None]
  - BLOOD TRIGLYCERIDES INCREASED [None]
  - ANGINA PECTORIS [None]
